FAERS Safety Report 24083622 (Version 5)
Quarter: 2024Q4

REPORT INFORMATION
  Report Type: Spontaneous
  Country: US (occurrence: US)
  Receive Date: 20240712
  Receipt Date: 20241030
  Transmission Date: 20250115
  Serious: Yes (Hospitalization, Other)
  Sender: MERCK
  Company Number: US-009507513-2407USA003447

PATIENT
  Sex: Male

DRUGS (8)
  1. WINREVAIR [Interacting]
     Active Substance: SOTATERCEPT-CSRK
     Indication: Pulmonary arterial hypertension
     Dosage: FIRST DOSE
     Dates: start: 20240606
  2. WINREVAIR [Interacting]
     Active Substance: SOTATERCEPT-CSRK
     Dosage: SECOND DOSE
     Dates: start: 20240627
  3. WINREVAIR [Interacting]
     Active Substance: SOTATERCEPT-CSRK
     Dosage: THIRD AND FOURTH DOSE
     Dates: start: 2024, end: 2024
  4. WINREVAIR [Interacting]
     Active Substance: SOTATERCEPT-CSRK
     Dosage: FIFTH DOSE
     Dates: start: 2024
  5. ELIQUIS [Interacting]
     Active Substance: APIXABAN
     Dosage: UNK
  6. PREDNISONE [Concomitant]
     Active Substance: PREDNISONE
     Dosage: UNK
  7. SILDENAFIL [Concomitant]
     Active Substance: SILDENAFIL
     Dosage: UNK
  8. ASPIRIN [Concomitant]
     Active Substance: ASPIRIN
     Dosage: UNK

REACTIONS (22)
  - Respiratory arrest [Unknown]
  - Pulmonary arterial hypertension [Unknown]
  - Gastrointestinal haemorrhage [Unknown]
  - Atrial fibrillation [Unknown]
  - Polycythaemia [Unknown]
  - Lung disorder [Unknown]
  - Skin discolouration [Not Recovered/Not Resolved]
  - Chromaturia [Unknown]
  - Nasal disorder [Not Recovered/Not Resolved]
  - Nausea [Recovering/Resolving]
  - Sputum increased [Recovering/Resolving]
  - Back pain [Unknown]
  - Haemoptysis [Not Recovered/Not Resolved]
  - Blood urine present [Unknown]
  - Ear haemorrhage [Unknown]
  - Drug interaction [Unknown]
  - Nasal crusting [Unknown]
  - Platelet count decreased [Unknown]
  - Haemoglobin abnormal [Unknown]
  - Platelet count abnormal [Unknown]
  - Asthenia [Unknown]
  - Weight increased [Unknown]

NARRATIVE: CASE EVENT DATE: 20240101
